FAERS Safety Report 4608796-0 (Version None)
Quarter: 2005Q1

REPORT INFORMATION
  Report Type: 
  Country: None (occurrence: None)
  Receive Date: 20050309
  Receipt Date: 20050225
  Transmission Date: 20050727
  Serious: Yes (Other)
  Sender: FDA-Public Use
  Company Number: 26276

PATIENT
  Age: 76 Year
  Sex: Female

DRUGS (1)
  1. ALDARA [Suspect]
     Indication: BASAL CELL CARCINOMA
     Dosage: (1 SACHET, 5 IN 1 WEEK (S)), TOPICAL
     Route: 061
     Dates: start: 20040501

REACTIONS (3)
  - APPLICATION SITE IRRITATION [None]
  - BASAL CELL CARCINOMA [None]
  - RECURRENT CANCER [None]
